FAERS Safety Report 5103547-8 (Version None)
Quarter: 2006Q3

REPORT INFORMATION
  Report Type: 
  Country: None (occurrence: None)
  Receive Date: 20060913
  Receipt Date: 20060908
  Transmission Date: 20061208
  Serious: Yes (Hospitalization, Other)
  Sender: FDA-Public Use
  Company Number: US-JNJFOC-20060900159

PATIENT
  Sex: Female
  Weight: 57.15 kg

DRUGS (7)
  1. DOXIL [Suspect]
     Indication: OVARIAN CANCER
     Route: 042
  2. AVAPRO [Concomitant]
     Indication: DRUG USE FOR UNKNOWN INDICATION
  3. DILAUDID [Concomitant]
     Indication: PAIN
  4. ATIVAN [Concomitant]
  5. PHENERGAN [Concomitant]
     Indication: NAUSEA
  6. ZOFRAN [Concomitant]
     Indication: DRUG USE FOR UNKNOWN INDICATION
     Dosage: TAKEN DAY OF CHEMO
  7. EMEND [Concomitant]
     Indication: DRUG USE FOR UNKNOWN INDICATION
     Dosage: TAKEN DAY OF CHEMO AND 2 DAYS FOLLOWING CHEMO

REACTIONS (4)
  - CHILLS [None]
  - CYSTITIS INTERSTITIAL [None]
  - DEHYDRATION [None]
  - PYREXIA [None]
